FAERS Safety Report 21539501 (Version 1)
Quarter: 2022Q4

REPORT INFORMATION
  Report Type: Other
  Country: None (occurrence: NP)
  Receive Date: 20221102
  Receipt Date: 20221102
  Transmission Date: 20230113
  Serious: Yes (Hospitalization, Other)
  Sender: FDA-Public Use
  Company Number: NP-Eywa Pharma Inc.-2134386

PATIENT
  Age: 25 Year
  Sex: Male

DRUGS (1)
  1. BACLOFEN [Suspect]
     Active Substance: BACLOFEN
     Indication: Product used for unknown indication
     Route: 065

REACTIONS (3)
  - Metabolic alkalosis [Recovering/Resolving]
  - Altered state of consciousness [Recovering/Resolving]
  - Intentional overdose [Unknown]
